FAERS Safety Report 24271327 (Version 1)
Quarter: 2024Q3

REPORT INFORMATION
  Report Type: Spontaneous
  Country: BO (occurrence: BO)
  Receive Date: 20240901
  Receipt Date: 20240901
  Transmission Date: 20241016
  Serious: Yes (Disabling, Other)
  Sender: JOHNSON AND JOHNSON
  Company Number: BO-JNJFOC-20240874642

PATIENT
  Age: 20 Year
  Sex: Male

DRUGS (2)
  1. HALDOL [Suspect]
     Active Substance: HALOPERIDOL
     Indication: Product used for unknown indication
     Route: 065
  2. RISPERDAL [Suspect]
     Active Substance: RISPERIDONE
     Indication: Product used for unknown indication
     Route: 048

REACTIONS (8)
  - Musculoskeletal stiffness [Unknown]
  - Amyotrophic lateral sclerosis [Unknown]
  - Dystonia [Unknown]
  - Drug abuse [Unknown]
  - Oculogyric crisis [Unknown]
  - Obsessive thoughts [Unknown]
  - Loss of personal independence in daily activities [Unknown]
  - Dyspnoea [Unknown]
